FAERS Safety Report 16816107 (Version 1)
Quarter: 2019Q3

REPORT INFORMATION
  Report Type: Report from Study
  Country: ES (occurrence: ES)
  Receive Date: 20190917
  Receipt Date: 20190917
  Transmission Date: 20191005
  Serious: Yes (Other)
  Sender: FDA-Public Use
  Company Number: ES-ROCHE-2410962

PATIENT

DRUGS (2)
  1. RIBAVIRIN. [Suspect]
     Active Substance: RIBAVIRIN
     Indication: CHRONIC HEPATITIS C
     Dosage: 1000 OR 1200 MG IN TWO DIVIDED DOSES DAILY
     Route: 048
  2. INTERFERON ALFA 2B [Suspect]
     Active Substance: INTERFERON ALFA-2B
     Indication: CHRONIC HEPATITIS C
     Dosage: 3 MILLION UNITS
     Route: 058

REACTIONS (4)
  - Major depression [Unknown]
  - Thrombocytopenia [Unknown]
  - Hypothyroidism [Unknown]
  - Asthma [Unknown]
